FAERS Safety Report 5501684-7 (Version None)
Quarter: 2007Q4

REPORT INFORMATION
  Report Type: 
  Country: None (occurrence: None)
  Receive Date: 20071030
  Receipt Date: 20071024
  Transmission Date: 20080405
  Serious: Yes (Hospitalization)
  Sender: FDA-Public Use
  Company Number: NL-BAYER-200716294GDS

PATIENT
  Age: 59 Year
  Sex: Female

DRUGS (2)
  1. SORAFENIB [Suspect]
     Indication: CLEAR CELL CARCINOMA OF THE KIDNEY
     Route: 048
     Dates: start: 20070911, end: 20071019
  2. PROLEUKIN [Suspect]
     Indication: CLEAR CELL CARCINOMA OF THE KIDNEY
     Route: 058
     Dates: start: 20071009, end: 20071019

REACTIONS (2)
  - BLOOD CREATININE INCREASED [None]
  - DIARRHOEA [None]
